FAERS Safety Report 7541345-6 (Version None)
Quarter: 2011Q2

REPORT INFORMATION
  Report Type: 
  Country: None (occurrence: None)
  Receive Date: 20110612
  Receipt Date: 20110603
  Transmission Date: 20111010
  Serious: Yes (Hospitalization)
  Sender: FDA-Public Use
  Company Number: NL-BRISTOL-MYERS SQUIBB COMPANY-15811805

PATIENT
  Age: 59 Year
  Sex: Male

DRUGS (6)
  1. PRIMPERAN TAB [Concomitant]
     Dates: start: 20110601
  2. CISPLATIN [Suspect]
     Indication: NON-SMALL CELL LUNG CANCER
     Dosage: CUMULATIVE DOSE:192MG ON 31MAY2011 (D1-D5) LAST DOSE ON 31MAY2011
     Route: 042
     Dates: start: 20110510
  3. OXYCONTIN [Concomitant]
     Dates: start: 20110523
  4. CETUXIMAB [Suspect]
     Indication: NON-SMALL CELL LUNG CANCER
     Dosage: CUMULATIVE DOSE:2800MG
     Route: 042
     Dates: start: 20110503, end: 20110531
  5. DEXAMETHASONE [Concomitant]
     Dates: start: 20110601
  6. KYTRIL [Concomitant]
     Dates: start: 20110601

REACTIONS (3)
  - DYSPHAGIA [None]
  - EAR PAIN [None]
  - NAUSEA [None]
